FAERS Safety Report 16890541 (Version 1)
Quarter: 2019Q4

REPORT INFORMATION
  Report Type: Spontaneous
  Country: US (occurrence: US)
  Receive Date: 20190812
  Receipt Date: 20190812
  Transmission Date: 20200122
  Serious: Yes (Death)
  Sender: FDA-Public Use
  Company Number: None

PATIENT
  Sex: Female

DRUGS (2)
  1. TREXALL [Suspect]
     Active Substance: METHOTREXATE SODIUM
  2. PAROXETINE. [Suspect]
     Active Substance: PAROXETINE

REACTIONS (5)
  - Wrong product administered [None]
  - Blood pressure decreased [None]
  - Product dispensing error [None]
  - Pallor [None]
  - Accidental death [None]
